FAERS Safety Report 15441779 (Version 3)
Quarter: 2018Q4

REPORT INFORMATION
  Report Type: Spontaneous
  Country: CZ (occurrence: CZ)
  Receive Date: 20180928
  Receipt Date: 20181102
  Transmission Date: 20190204
  Serious: Yes (Life-Threatening, Hospitalization)
  Sender: FDA-Public Use
  Company Number: CZ-ASTRAZENECA-2018SF22769

PATIENT
  Age: 76 Year
  Sex: Female
  Weight: 22.4 kg

DRUGS (27)
  1. BLINDED PLACEBO [Suspect]
     Active Substance: INVESTIGATIONAL PRODUCT
     Indication: MYOCARDIAL INFARCTION
     Route: 042
     Dates: start: 20180924
  2. KALIUM CHLORATUM [Concomitant]
     Active Substance: POTASSIUM CHLORIDE
     Indication: HYPOKALAEMIA
     Dosage: 150.00 ML
     Route: 042
     Dates: start: 20180916, end: 20180918
  3. MAGNESIUM SULFATE. [Concomitant]
     Active Substance: MAGNESIUM SULFATE
     Indication: HYPOKALAEMIA
     Dosage: 50.00ML
     Route: 042
     Dates: start: 20180916, end: 20180918
  4. BLINDED PLACEBO [Suspect]
     Active Substance: INVESTIGATIONAL PRODUCT
     Indication: MYOCARDIAL INFARCTION
     Route: 042
     Dates: start: 20181008
  5. PERINDOPRIL [Concomitant]
     Active Substance: PERINDOPRIL
     Indication: HYPERTENSION
     Route: 048
     Dates: start: 2010, end: 20180916
  6. LETTROX [Concomitant]
     Indication: HYPOTHYROIDISM
     Route: 048
     Dates: start: 2005, end: 20180917
  7. SORTIS [Concomitant]
     Active Substance: ATORVASTATIN
     Indication: DYSLIPIDAEMIA
     Route: 048
     Dates: start: 20180916
  8. HEPARIN [Concomitant]
     Active Substance: HEPARIN SODIUM
     Indication: ACUTE CORONARY SYNDROME
     Dosage: 9000 UNIT ONCE/SINGLE ADMINISTRATION
     Route: 042
     Dates: start: 20180916, end: 20180916
  9. RINGER???S SOLUTION [Concomitant]
     Indication: HYPOTENSION
     Dosage: 4500.00 ML CONTINUOUS
     Route: 042
     Dates: start: 20180916, end: 20180918
  10. CITALOPRAM [Suspect]
     Active Substance: CITALOPRAM HYDROBROMIDE
     Dosage: 20 MG TBL
     Route: 048
  11. TRITTICO [Suspect]
     Active Substance: TRAZODONE HYDROCHLORIDE
     Indication: DEPRESSION
     Route: 048
     Dates: start: 20180919
  12. BLINDED PLACEBO [Suspect]
     Active Substance: INVESTIGATIONAL PRODUCT
     Indication: MYOCARDIAL INFARCTION
     Route: 042
     Dates: start: 20181001
  13. BRILLIQUE [Concomitant]
     Active Substance: TICAGRELOR
     Indication: ACUTE CORONARY SYNDROME
     Route: 048
     Dates: start: 20180916, end: 20180920
  14. INDAPAMIDE. [Concomitant]
     Active Substance: INDAPAMIDE
     Indication: HYPERTENSION
     Route: 048
     Dates: start: 2010, end: 20180916
  15. NITROPOHL [Concomitant]
     Indication: ACUTE CORONARY SYNDROME
     Dosage: 0.1MG ONCE/SINGLE ADMINISTRATION
     Route: 042
     Dates: start: 20180916, end: 20180916
  16. NORADRENALINE [Concomitant]
     Active Substance: NOREPINEPHRINE
     Indication: HYPOTENSION
     Dosage: 10 MG CONTINUOUS
     Route: 042
     Dates: start: 20180916, end: 20180916
  17. PRESTARIUM NEO [Concomitant]
     Active Substance: PERINDOPRIL ARGININE
     Indication: ACUTE CORONARY SYNDROME
     Route: 042
     Dates: start: 20180916
  18. TRITTICO [Suspect]
     Active Substance: TRAZODONE HYDROCHLORIDE
     Indication: DEPRESSION
     Route: 048
     Dates: start: 2012, end: 20180917
  19. BLINDED PLACEBO [Suspect]
     Active Substance: INVESTIGATIONAL PRODUCT
     Indication: MYOCARDIAL INFARCTION
     Route: 042
     Dates: start: 20180916
  20. BLINDED PLACEBO [Suspect]
     Active Substance: INVESTIGATIONAL PRODUCT
     Indication: MYOCARDIAL INFARCTION
     Route: 042
     Dates: start: 20180918
  21. APAURIN [Concomitant]
     Active Substance: DIAZEPAM
     Indication: ACUTE CORONARY SYNDROME
     Dosage: 3.0MG ONCE/SINGLE ADMINISTRATION
     Route: 042
     Dates: start: 20180916, end: 20180916
  22. TRIMECAINE [Concomitant]
     Active Substance: TRIMECAINE
     Indication: ACUTE CORONARY SYNDROME
     Dosage: 100.0MG ONCE/SINGLE ADMINISTRATION
     Route: 058
     Dates: start: 20180916, end: 20180916
  23. BLINDED PLACEBO [Suspect]
     Active Substance: INVESTIGATIONAL PRODUCT
     Indication: MYOCARDIAL INFARCTION
     Route: 042
     Dates: start: 20181015
  24. ACETYLSALICYLIC ACID [Concomitant]
     Active Substance: ASPIRIN
     Indication: ACUTE CORONARY SYNDROME
     Dosage: 500.0MG ONCE/SINGLE ADMINISTRATION
     Route: 042
     Dates: start: 20180916, end: 20180916
  25. CIPRALEX [Concomitant]
     Active Substance: ESCITALOPRAM OXALATE
     Indication: DEPRESSION
     Route: 048
     Dates: start: 2008, end: 20180917
  26. ASPEGIC [ACETYLSALICYLATE LYSINE] [Concomitant]
     Active Substance: ASPIRIN DL-LYSINE
     Indication: ACUTE CORONARY SYNDROME
     Dosage: 500.0MG ONCE/SINGLE ADMINISTRATION
     Route: 042
     Dates: start: 20180916, end: 20180916
  27. ATROPIN [Concomitant]
     Active Substance: ATROPINE
     Indication: BRADYCARDIA
     Dosage: 1.0MG ONCE/SINGLE ADMINISTRATION
     Route: 042
     Dates: start: 20180916, end: 20180916

REACTIONS (1)
  - Torsade de pointes [Recovered/Resolved]

NARRATIVE: CASE EVENT DATE: 20180917
